FAERS Safety Report 21203372 (Version 3)
Quarter: 2022Q3

REPORT INFORMATION
  Report Type: Spontaneous
  Country: PH (occurrence: PH)
  Receive Date: 20220811
  Receipt Date: 20220825
  Transmission Date: 20221027
  Serious: Yes (Other)
  Sender: FDA-Public Use
  Company Number: PH-PFIZER INC-PV202200040244

PATIENT
  Age: 58 Year
  Sex: Female

DRUGS (4)
  1. LIPITOR [Suspect]
     Active Substance: ATORVASTATIN CALCIUM
     Indication: Dyslipidaemia
     Dosage: 20 MG, 1X/DAY AT BEDTIME
     Route: 048
     Dates: start: 201910
  2. FLUTICASONE PROPIONATE [Suspect]
     Active Substance: FLUTICASONE PROPIONATE
     Indication: Bronchiectasis
     Dosage: 1 DF, DAILY (1 PUFF AT NIGHT)
  3. METFORMIN [Concomitant]
     Active Substance: METFORMIN HYDROCHLORIDE
     Indication: Glucose tolerance impaired
     Dosage: 1 DF, 2X/DAY (1 TAB ONCE A DAY)
  4. CALTRATE [Concomitant]
     Active Substance: CALCIUM CARBONATE
     Indication: Osteopenia
     Dosage: UNK, 1 TABLET 1X/DAY

REACTIONS (1)
  - Cataract [Not Recovered/Not Resolved]

NARRATIVE: CASE EVENT DATE: 20220401
